FAERS Safety Report 18845670 (Version 1)
Quarter: 2021Q1

REPORT INFORMATION
  Report Type: Spontaneous
  Country: SE (occurrence: SE)
  Receive Date: 20210204
  Receipt Date: 20210204
  Transmission Date: 20210419
  Serious: Yes (Other)
  Sender: FDA-Public Use
  Company Number: SE-BAYER-2021-042961

PATIENT
  Age: 34 Year
  Sex: Female
  Weight: 63 kg

DRUGS (1)
  1. KYLEENA [Suspect]
     Active Substance: LEVONORGESTREL
     Indication: CONTRACEPTION
     Dosage: 17.5 ?G PER DAY CONTINUOUSLY
     Route: 015
     Dates: start: 20201216, end: 20210107

REACTIONS (5)
  - Mood swings [Unknown]
  - Suicidal ideation [Unknown]
  - Depression [Unknown]
  - Panic reaction [Unknown]
  - Anxiety [Unknown]

NARRATIVE: CASE EVENT DATE: 20201220
